FAERS Safety Report 19209631 (Version 1)
Quarter: 2021Q2

REPORT INFORMATION
  Report Type: Spontaneous
  Country: US (occurrence: US)
  Receive Date: 20210504
  Receipt Date: 20210504
  Transmission Date: 20210717
  Serious: Yes (Other)
  Sender: FDA-Public Use
  Company Number: US-ASTRAZENECA-2021A366799

PATIENT
  Sex: Female
  Weight: 61.2 kg

DRUGS (7)
  1. XALKORI [Concomitant]
     Active Substance: CRIZOTINIB
  2. TAGRISSO [Suspect]
     Active Substance: OSIMERTINIB
     Indication: LUNG CARCINOMA CELL TYPE UNSPECIFIED STAGE 0
     Route: 048
     Dates: start: 20190718
  3. CEPHALEXIN. [Concomitant]
     Active Substance: CEPHALEXIN
  4. ELIQUIS [Concomitant]
     Active Substance: APIXABAN
  5. PROCHLORPERAZINE MALEATE. [Concomitant]
     Active Substance: PROCHLORPERAZINE MALEATE
  6. DAILY VITE [Concomitant]
     Active Substance: VITAMINS
  7. ACYCLOVIR. [Concomitant]
     Active Substance: ACYCLOVIR

REACTIONS (1)
  - Malignant neoplasm progression [Not Recovered/Not Resolved]
